FAERS Safety Report 7421595 (Version 5)
Quarter: 2013Q2

REPORT INFORMATION
  Report Type: Report from Study
  Country: TR (occurrence: TR)
  Receive Date: 20100616
  Receipt Date: 20130416
  Transmission Date: 20140414
  Serious: Yes (Other)
  Sender: FDA-Public Use
  Company Number: PHHO2010TR08686

PATIENT
  Sex: Female
  Weight: 75 kg

DRUGS (2)
  1. CGP 57148B [Suspect]
     Indication: GASTROINTESTINAL STROMAL TUMOUR
     Dosage: 400 MG, UNK
     Route: 048
     Dates: start: 20090722, end: 20100530
  2. CGP 57148B [Suspect]
     Dosage: UNK
     Route: 048
     Dates: start: 20100610

REACTIONS (3)
  - Foetal death [Unknown]
  - Abdominal pain [Unknown]
  - Exposure during pregnancy [Unknown]
